FAERS Safety Report 6266075-2 (Version None)
Quarter: 2009Q3

REPORT INFORMATION
  Report Type: 
  Country: None (occurrence: None)
  Receive Date: 20090713
  Receipt Date: 20090701
  Transmission Date: 20100115
  Serious: Yes (Hospitalization)
  Sender: FDA-Public Use
  Company Number: BR-ROCHE-634030

PATIENT
  Age: 16 Year
  Sex: Female
  Weight: 60 kg

DRUGS (1)
  1. ROACUTAN [Suspect]
     Indication: DRUG USE FOR UNKNOWN INDICATION
     Dosage: FREQUENCY GIVEN AS : TOTAL 11BOXES, TAKEN IRREGULARLY.
     Route: 048
     Dates: start: 20070101

REACTIONS (2)
  - ILL-DEFINED DISORDER [None]
  - SURGERY [None]
